FAERS Safety Report 5701920-8 (Version None)
Quarter: 2008Q2

REPORT INFORMATION
  Report Type: 
  Country: None (occurrence: None)
  Receive Date: 20080411
  Receipt Date: 20080404
  Transmission Date: 20081010
  Serious: Yes (Hospitalization)
  Sender: FDA-Public Use
  Company Number: PHHY2008JP01870

PATIENT
  Age: 15 Year
  Sex: Female

DRUGS (3)
  1. NEORAL [Suspect]
     Indication: NEPHROTIC SYNDROME
     Dosage: 100 MG/DAY
     Route: 048
     Dates: start: 20080117, end: 20080201
  2. PROGRAF [Concomitant]
     Indication: NEPHROTIC SYNDROME
     Dates: end: 20080101
  3. BREDININ [Concomitant]
     Indication: NEPHROTIC SYNDROME

REACTIONS (1)
  - PANCYTOPENIA [None]
